FAERS Safety Report 7725573-2 (Version None)
Quarter: 2011Q3

REPORT INFORMATION
  Report Type: 
  Country: None (occurrence: None)
  Receive Date: 20110902
  Receipt Date: 20110824
  Transmission Date: 20111222
  Serious: Yes (Other)
  Sender: FDA-Public Use
  Company Number: DE-US-EMD SERONO, INC.-7079263

PATIENT
  Sex: Male
  Weight: 90 kg

DRUGS (6)
  1. VALSARTAN [Concomitant]
     Indication: HYPERTENSION
     Route: 048
  2. REBIF [Suspect]
     Indication: MULTIPLE SCLEROSIS
     Route: 058
  3. RESTEX [Concomitant]
     Indication: RESTLESS LEGS SYNDROME
     Route: 048
  4. LEVOTHYROXINE SODIUM [Concomitant]
     Indication: HYPOTHYROIDISM
     Route: 048
  5. MARCUMAR [Suspect]
     Indication: THROMBOSIS PROPHYLAXIS
     Route: 048
     Dates: start: 20100901
  6. NOVALGIN TROPEN [Concomitant]
     Indication: PAIN
     Route: 048

REACTIONS (1)
  - COAGULATION TIME ABNORMAL [None]
